FAERS Safety Report 15424623 (Version 33)
Quarter: 2020Q3

REPORT INFORMATION
  Report Type: Spontaneous
  Country: JP (occurrence: JP)
  Receive Date: 20180925
  Receipt Date: 20200714
  Transmission Date: 20201102
  Serious: Yes (Other)
  Sender: FDA-Public Use
  Company Number: JP-JNJFOC-20180621660

PATIENT
  Age: 65 Year
  Sex: Female

DRUGS (3)
  1. XEPLION [Suspect]
     Active Substance: PALIPERIDONE PALMITATE
     Indication: SCHIZOPHRENIA
     Dosage: PALIPERIDONE PALMITATE:25MG
     Route: 030
  2. XEPLION [Suspect]
     Active Substance: PALIPERIDONE PALMITATE
  3. XEPLION [Suspect]
     Active Substance: PALIPERIDONE PALMITATE

REACTIONS (40)
  - Altered state of consciousness [Unknown]
  - Spinal osteoarthritis [Recovered/Resolved]
  - Muscle spasms [Unknown]
  - Sensory loss [Unknown]
  - Anxiety [Unknown]
  - Back pain [Unknown]
  - Hallucination, auditory [Recovered/Resolved]
  - Nervousness [Unknown]
  - Eyelid oedema [Recovering/Resolving]
  - Ocular hyperaemia [Unknown]
  - Delusion [Not Recovered/Not Resolved]
  - Arthropod sting [Unknown]
  - Judgement impaired [Unknown]
  - Palpitations [Unknown]
  - Muscle atrophy [Not Recovered/Not Resolved]
  - Polydipsia [Unknown]
  - Feeling abnormal [Unknown]
  - Myalgia [Unknown]
  - Therapeutic product effect variable [Unknown]
  - Dyspnoea [Unknown]
  - Chest pain [Unknown]
  - Physical deconditioning [Unknown]
  - Injection site induration [Unknown]
  - Injection site mass [Not Recovered/Not Resolved]
  - Sleep disorder [Unknown]
  - Posture abnormal [Not Recovered/Not Resolved]
  - Injection site pain [Unknown]
  - Psychiatric symptom [Unknown]
  - Swelling [Unknown]
  - Musculoskeletal chest pain [Unknown]
  - Apathy [Unknown]
  - Abdominal pain upper [Unknown]
  - Adverse reaction [Recovered/Resolved]
  - Mass [Not Recovered/Not Resolved]
  - Muscle rigidity [Unknown]
  - Irritability [Unknown]
  - Thinking abnormal [Unknown]
  - Panic reaction [Unknown]
  - Personality change [Unknown]
  - Abdominal pain [Unknown]

NARRATIVE: CASE EVENT DATE: 201808
